FAERS Safety Report 8475360-5 (Version None)
Quarter: 2012Q2

REPORT INFORMATION
  Report Type: 
  Country: None (occurrence: None)
  Receive Date: 20120628
  Receipt Date: 20120621
  Transmission Date: 20120825
  Serious: Yes (Hospitalization)
  Sender: FDA-Public Use
  Company Number: GB-ROCHE-1080528

PATIENT
  Sex: Female
  Weight: 57 kg

DRUGS (2)
  1. PLAQUENIL [Concomitant]
     Dates: start: 20091127
  2. MABTHERA [Suspect]
     Indication: PRODUCT USED FOR UNKNOWN INDICATION
     Dosage: DATE OF LAST DOSE PRIOR TO SAE 11/NOV/2011
     Dates: start: 20090701

REACTIONS (1)
  - DIVERTICULUM INTESTINAL [None]
